FAERS Safety Report 21817291 (Version 1)
Quarter: 2023Q1

REPORT INFORMATION
  Report Type: Spontaneous
  Country: US (occurrence: None)
  Receive Date: 20230104
  Receipt Date: 20230104
  Transmission Date: 20230418
  Serious: Yes (Other)
  Sender: FDA-Public Use
  Company Number: None

PATIENT
  Age: 38 Year
  Sex: Male

DRUGS (1)
  1. BUPRENORPHINE HYDROCHLORIDE\NALOXONE HYDROCHLORIDE [Suspect]
     Active Substance: BUPRENORPHINE HYDROCHLORIDE\NALOXONE HYDROCHLORIDE
     Indication: Drug dependence
     Dosage: 2 TBLETS/16MG  DAILY ORALLY? ?
     Route: 048
     Dates: start: 202003

REACTIONS (3)
  - Stomatitis [None]
  - Blister [None]
  - Hypophagia [None]

NARRATIVE: CASE EVENT DATE: 20221206
